FAERS Safety Report 8267652-X (Version None)
Quarter: 2012Q2

REPORT INFORMATION
  Report Type: 
  Country: None (occurrence: None)
  Receive Date: 20120409
  Receipt Date: 20120403
  Transmission Date: 20120825
  Serious: Yes (Hospitalization, Congenital Anomaly, Other)
  Sender: FDA-Public Use
  Company Number: US-PFIZER INC-2011288395

PATIENT
  Sex: Male
  Weight: 3.8 kg

DRUGS (13)
  1. MULTI-VITAMINS [Concomitant]
     Dosage: UNK
     Route: 064
     Dates: start: 20090823
  2. SERTRALINE [Concomitant]
     Dosage: 50 MG, UNK
     Route: 064
     Dates: start: 20081230
  3. HYDROCORTISONE [Concomitant]
     Dosage: UNK
     Route: 064
     Dates: start: 20090423
  4. ALBUTEROL [Concomitant]
     Dosage: UNK
     Route: 064
     Dates: start: 20090823
  5. PROMETHAZINE [Concomitant]
     Indication: NAUSEA
     Dosage: 12.5 MG, EVERY 6 HOURS
     Route: 064
     Dates: start: 20090823
  6. ADVAIR DISKUS 100/50 [Concomitant]
     Indication: ASTHMA
     Dosage: 2 PUFFS AS NEEDED
     Route: 064
     Dates: start: 20090823
  7. NALBUPHINE [Concomitant]
     Indication: PAIN
     Dosage: 5 MG, EVERY HOUR
     Route: 064
     Dates: start: 20090823
  8. ZOLOFT [Suspect]
     Indication: DEPRESSION
     Dosage: 50 MG ONE TABLET PER ORAL TWICE A DAY
     Route: 064
     Dates: start: 20090127
  9. DIPHENHYDRAMINE [Concomitant]
     Dosage: 50 MG, UNK
     Route: 064
     Dates: start: 20090423
  10. PROMETHAZINE [Concomitant]
     Indication: VOMITING
  11. ZOLOFT [Suspect]
     Dosage: 50 MG, 1X/DAY
     Route: 064
  12. TRIAMCINOLONE [Concomitant]
     Dosage: UNK
     Route: 064
     Dates: start: 20090420
  13. EFFEXOR [Concomitant]
     Dosage: 50 MG, 1X/DAY
     Route: 064
     Dates: start: 20090823

REACTIONS (14)
  - PULMONARY VALVE INCOMPETENCE [None]
  - RIGHT ATRIAL DILATATION [None]
  - PECTUS EXCAVATUM [None]
  - HEART DISEASE CONGENITAL [None]
  - MOTOR DYSFUNCTION [None]
  - MATERNAL EXPOSURE TIMING UNSPECIFIED [None]
  - ATRIAL SEPTAL DEFECT [None]
  - CARDIOMEGALY [None]
  - DILATATION VENTRICULAR [None]
  - SCOLIOSIS [None]
  - GROWTH RETARDATION [None]
  - TRICUSPID VALVE INCOMPETENCE [None]
  - RIGHT VENTRICULAR HYPERTROPHY [None]
  - ANOMALOUS PULMONARY VENOUS CONNECTION [None]
